FAERS Safety Report 4325560-0 (Version None)
Quarter: 2004Q1

REPORT INFORMATION
  Report Type: 
  Country: None (occurrence: None)
  Receive Date: 20040324
  Receipt Date: 20040310
  Transmission Date: 20041129
  Serious: Yes (Other)
  Sender: FDA-Public Use
  Company Number: USA030639023

PATIENT
  Age: 70 Year
  Sex: Female
  Weight: 86 kg

DRUGS (3)
  1. FORTEO [Suspect]
     Dosage: 20 UG/DAY
     Dates: start: 20030530
  2. PREDNISONE [Concomitant]
  3. FOSAMAX [Concomitant]

REACTIONS (9)
  - BONE DENSITY DECREASED [None]
  - FALL [None]
  - INJECTION SITE ERYTHEMA [None]
  - INJECTION SITE HAEMORRHAGE [None]
  - JOINT DISLOCATION [None]
  - MEDICATION ERROR [None]
  - NAUSEA [None]
  - UPPER LIMB FRACTURE [None]
  - WRIST FRACTURE [None]
